FAERS Safety Report 9961449 (Version 1)
Quarter: 2014Q1

REPORT INFORMATION
  Report Type: Spontaneous
  Country: US (occurrence: US)
  Receive Date: 20140305
  Receipt Date: 20140305
  Transmission Date: 20141002
  Serious: No
  Sender: FDA-Public Use
  Company Number: US-B.I. PHARMACEUTICALS,INC./RIDGEFIELD-2014-BI-07851BP

PATIENT
  Age: 72 Year
  Sex: Male
  Weight: 104 kg

DRUGS (2)
  1. PRADAXA [Suspect]
     Indication: BLOOD DISORDER
     Dosage: 300 MG
     Route: 048
     Dates: start: 201401
  2. AMLODIPINE [Concomitant]
     Indication: HYPERTENSION
     Dosage: 10 MG
     Route: 048

REACTIONS (3)
  - Cough [Not Recovered/Not Resolved]
  - Headache [Not Recovered/Not Resolved]
  - Off label use [Unknown]
